FAERS Safety Report 7717040-7 (Version None)
Quarter: 2011Q3

REPORT INFORMATION
  Report Type: 
  Country: None (occurrence: None)
  Receive Date: 20110829
  Receipt Date: 20110823
  Transmission Date: 20111222
  Serious: Yes (Other)
  Sender: FDA-Public Use
  Company Number: DE-AMGEN-DEUSP2011042822

PATIENT
  Sex: Male

DRUGS (1)
  1. PROLIA [Suspect]
     Indication: METASTASES TO BONE
     Dosage: 60 MG, UNK
     Dates: start: 20110809

REACTIONS (1)
  - DRUG NAME CONFUSION [None]
